FAERS Safety Report 22977469 (Version 2)
Quarter: 2023Q4

REPORT INFORMATION
  Report Type: Spontaneous
  Country: US (occurrence: US)
  Receive Date: 20230925
  Receipt Date: 20231025
  Transmission Date: 20240109
  Serious: No
  Sender: FDA-Public Use
  Company Number: US-PFIZER INC-202300300091

PATIENT
  Age: 18 Year
  Sex: Female
  Weight: 43.2 kg

DRUGS (8)
  1. OXBRYTA [Suspect]
     Active Substance: VOXELOTOR
     Indication: Sickle cell disease
     Dosage: 1500 MG, 1X/DAY (500MG, 3 TABLETS ONCE DAILY)
     Route: 048
     Dates: start: 20220328
  2. OXBRYTA [Suspect]
     Active Substance: VOXELOTOR
     Dosage: 1500 MG, DAILY
     Route: 048
     Dates: start: 202301, end: 202304
  3. OXBRYTA [Suspect]
     Active Substance: VOXELOTOR
     Dosage: 1500 MG, DAILY
     Route: 048
     Dates: start: 2023, end: 202305
  4. HYDROXYUREA [Concomitant]
     Active Substance: HYDROXYUREA
     Indication: Sickle cell disease
     Dosage: 1000 MG, ALTERNATE DAY
     Dates: start: 2016
  5. HYDROXYUREA [Concomitant]
     Active Substance: HYDROXYUREA
     Dosage: 1500 MG, ALTERNATE DAY
     Dates: start: 2016
  6. ZYRTEC [Concomitant]
     Active Substance: CETIRIZINE HYDROCHLORIDE
     Indication: Hypersensitivity
     Dosage: 10 MG, DAILY
  7. FOLIC ACID [Concomitant]
     Active Substance: FOLIC ACID
     Indication: Sickle cell disease
     Dosage: 1 MG, DAILY
     Dates: start: 2005
  8. CHOLECALCIFEROL [Concomitant]
     Active Substance: CHOLECALCIFEROL
     Indication: Sickle cell disease
     Dosage: 2000 IU, DAILY
     Dates: start: 20230712

REACTIONS (2)
  - Pain [Recovered/Resolved]
  - Intentional product misuse [Unknown]

NARRATIVE: CASE EVENT DATE: 20220301
